FAERS Safety Report 10311623 (Version 1)
Quarter: 2014Q3

REPORT INFORMATION
  Report Type: Report from Study
  Country: CA (occurrence: CA)
  Receive Date: 20140717
  Receipt Date: 20140717
  Transmission Date: 20150326
  Serious: Yes (Other)
  Sender: FDA-Public Use
  Company Number: CA-BRISTOL-MYERS SQUIBB COMPANY-21184593

PATIENT
  Age: 50 Year
  Sex: Male

DRUGS (5)
  1. ORENCIA [Suspect]
     Active Substance: ABATACEPT
     Indication: RHEUMATOID ARTHRITIS
     Route: 042
     Dates: start: 20130327
  2. NAPROXEN. [Concomitant]
     Active Substance: NAPROXEN
  3. COZAAR [Concomitant]
     Active Substance: LOSARTAN POTASSIUM
  4. NORVASC [Concomitant]
     Active Substance: AMLODIPINE BESYLATE
  5. RABEPRAZOLE [Concomitant]
     Active Substance: RABEPRAZOLE

REACTIONS (10)
  - Laceration [Unknown]
  - Contusion [Unknown]
  - Fall [Unknown]
  - Musculoskeletal discomfort [Unknown]
  - Balance disorder [Recovering/Resolving]
  - Joint injury [Unknown]
  - Arthropathy [Unknown]
  - Joint swelling [Unknown]
  - Limb asymmetry [Unknown]
  - Musculoskeletal stiffness [Unknown]

NARRATIVE: CASE EVENT DATE: 201404
